FAERS Safety Report 21927431 (Version 3)
Quarter: 2024Q3

REPORT INFORMATION
  Report Type: Report from Study
  Country: JP (occurrence: JP)
  Receive Date: 20230130
  Receipt Date: 20240704
  Transmission Date: 20241016
  Serious: Yes (Hospitalization)
  Sender: JOHNSON AND JOHNSON
  Company Number: JP-JNJFOC-20230152298

PATIENT
  Age: 35 Year
  Sex: Female
  Weight: 39.2 kg

DRUGS (49)
  1. SELEXIPAG [Suspect]
     Active Substance: SELEXIPAG
     Indication: Pulmonary arterial hypertension
     Route: 048
     Dates: start: 20180427, end: 201804
  2. SELEXIPAG [Suspect]
     Active Substance: SELEXIPAG
     Route: 048
     Dates: start: 20180501, end: 20190110
  3. SELEXIPAG [Suspect]
     Active Substance: SELEXIPAG
     Route: 048
     Dates: start: 20190308, end: 20190311
  4. SELEXIPAG [Suspect]
     Active Substance: SELEXIPAG
     Route: 048
     Dates: start: 20190312, end: 20190314
  5. SELEXIPAG [Suspect]
     Active Substance: SELEXIPAG
     Route: 048
     Dates: start: 20190315, end: 20190318
  6. SELEXIPAG [Suspect]
     Active Substance: SELEXIPAG
     Route: 048
     Dates: start: 20190319, end: 20190321
  7. SELEXIPAG [Suspect]
     Active Substance: SELEXIPAG
     Route: 048
     Dates: start: 20190322, end: 20190324
  8. SELEXIPAG [Suspect]
     Active Substance: SELEXIPAG
     Route: 048
     Dates: start: 20190325, end: 20200413
  9. SELEXIPAG [Suspect]
     Active Substance: SELEXIPAG
     Dosage: 1.2MG, 1.0MG/ DAY
     Route: 048
     Dates: start: 20200414, end: 20200416
  10. SELEXIPAG [Suspect]
     Active Substance: SELEXIPAG
     Dosage: 1.2MG, 1.4MG/ DAY
     Route: 048
     Dates: start: 20200417, end: 20200625
  11. SELEXIPAG [Suspect]
     Active Substance: SELEXIPAG
     Route: 048
     Dates: start: 20200626, end: 20200629
  12. SELEXIPAG [Suspect]
     Active Substance: SELEXIPAG
     Dosage: (1.4MG, 1.6MG)/ DAY
     Route: 048
     Dates: start: 20200630, end: 20200705
  13. SELEXIPAG [Suspect]
     Active Substance: SELEXIPAG
     Route: 048
     Dates: start: 20200706, end: 20201105
  14. SELEXIPAG [Suspect]
     Active Substance: SELEXIPAG
     Route: 048
     Dates: start: 20201106, end: 20201203
  15. SELEXIPAG [Suspect]
     Active Substance: SELEXIPAG
     Dosage: (1.2MG, 1.0MG)/DAY.
     Route: 048
     Dates: start: 20201204, end: 20201221
  16. SELEXIPAG [Suspect]
     Active Substance: SELEXIPAG
     Dosage: (1.2MG, 0.8MG)/DAY.
     Route: 048
     Dates: start: 20201222
  17. FLOLAN [Suspect]
     Active Substance: EPOPROSTENOL SODIUM
     Indication: Pulmonary arterial hypertension
     Route: 042
     Dates: end: 20180502
  18. FLOLAN [Suspect]
     Active Substance: EPOPROSTENOL SODIUM
     Route: 042
     Dates: start: 20180502, end: 20190311
  19. FLOLAN [Suspect]
     Active Substance: EPOPROSTENOL SODIUM
     Dosage: 46.15-38.46NG/KG/MIN
     Route: 042
     Dates: start: 20190311, end: 20190401
  20. FLOLAN [Suspect]
     Active Substance: EPOPROSTENOL SODIUM
     Dosage: 38.46-32.1NG/KG/MIN.
     Route: 042
     Dates: start: 20190401
  21. FLOLAN [Suspect]
     Active Substance: EPOPROSTENOL SODIUM
     Dosage: 32.1-28.21NG/KG/MIN.
     Route: 042
     Dates: end: 20190902
  22. FLOLAN [Suspect]
     Active Substance: EPOPROSTENOL SODIUM
     Dosage: 28.21-22.2NG/KG/MIN.
     Route: 042
     Dates: start: 20190902, end: 20190910
  23. FLOLAN [Suspect]
     Active Substance: EPOPROSTENOL SODIUM
     Route: 042
     Dates: start: 20190910, end: 20200414
  24. FLOLAN [Suspect]
     Active Substance: EPOPROSTENOL SODIUM
     Dosage: 21.25-18.52NG/KG/MIN.
     Route: 042
     Dates: start: 20200414, end: 20200416
  25. FLOLAN [Suspect]
     Active Substance: EPOPROSTENOL SODIUM
     Route: 042
     Dates: start: 20200416, end: 20200626
  26. FLOLAN [Suspect]
     Active Substance: EPOPROSTENOL SODIUM
     Dosage: 17.72~14.32NG/KG/MIN
     Route: 042
     Dates: start: 20200626, end: 20200708
  27. FLOLAN [Suspect]
     Active Substance: EPOPROSTENOL SODIUM
     Route: 042
     Dates: start: 20200708, end: 20201001
  28. FLOLAN [Suspect]
     Active Substance: EPOPROSTENOL SODIUM
     Dosage: 13.7-12NG/KG/MIN.
     Route: 042
     Dates: start: 20201001
  29. TADALAFIL [Concomitant]
     Active Substance: TADALAFIL
     Indication: Pulmonary arterial hypertension
     Dates: start: 20190830, end: 20190902
  30. TADALAFIL [Concomitant]
     Active Substance: TADALAFIL
     Dosage: 22.2-21.25 NG/KG/MIN
     Dates: start: 20190903, end: 20191003
  31. TADALAFIL [Concomitant]
     Active Substance: TADALAFIL
     Dates: start: 20191031
  32. SPIRONOLACTONE [Concomitant]
     Active Substance: SPIRONOLACTONE
     Indication: Cardiac failure
  33. TORSEMIDE [Concomitant]
     Active Substance: TORSEMIDE
     Indication: Cardiac failure
  34. SULFAMETHOXAZOLE\TRIMETHOPRIM [Concomitant]
     Active Substance: SULFAMETHOXAZOLE\TRIMETHOPRIM
     Indication: Prophylaxis
  35. PREDNISOLONE [Concomitant]
     Active Substance: PREDNISOLONE
  36. NEXIUM [Concomitant]
     Active Substance: ESOMEPRAZOLE MAGNESIUM
     Indication: Prophylaxis
  37. ITOPRIDE [Concomitant]
     Active Substance: ITOPRIDE
     Indication: Prophylaxis
     Dates: end: 20191003
  38. ITOPRIDE [Concomitant]
     Active Substance: ITOPRIDE
     Dates: start: 20191004
  39. PRANLUKAST [Concomitant]
     Active Substance: PRANLUKAST
  40. AMBROXOL HYDROCHLORIDE [Concomitant]
     Active Substance: AMBROXOL HYDROCHLORIDE
     Indication: Prophylaxis
  41. FERRIC SODIUM CITRATE [Concomitant]
     Active Substance: FERRIC SODIUM CITRATE
  42. POTASSIUM CHLORIDE [Concomitant]
     Active Substance: POTASSIUM CHLORIDE
     Indication: Electrolyte substitution therapy
     Dates: end: 20191003
  43. LUNESTA [Concomitant]
     Active Substance: ESZOPICLONE
  44. ETIZOLAM [Concomitant]
     Active Substance: ETIZOLAM
  45. POTASSIUM IODIDE [Concomitant]
     Active Substance: POTASSIUM IODIDE
  46. PROPYLTHIOURACIL [Concomitant]
     Active Substance: PROPYLTHIOURACIL
  47. ULTRACET [Concomitant]
     Active Substance: ACETAMINOPHEN\TRAMADOL HYDROCHLORIDE
     Indication: Prophylaxis
  48. SLOW K [Concomitant]
     Active Substance: POTASSIUM CHLORIDE
     Indication: Electrolyte substitution therapy
     Dates: start: 20191004
  49. REVATIO [Concomitant]
     Active Substance: SILDENAFIL CITRATE
     Indication: Pulmonary arterial hypertension
     Dates: start: 20191003, end: 20191031

REACTIONS (5)
  - Dehydration [Recovered/Resolved]
  - Malaise [Recovering/Resolving]
  - Presyncope [Recovered/Resolved]
  - Lymphadenopathy [Not Recovered/Not Resolved]
  - Decreased appetite [Recovered/Resolved]

NARRATIVE: CASE EVENT DATE: 20180705
